FAERS Safety Report 8847272 (Version 1)
Quarter: 2012Q4

REPORT INFORMATION
  Report Type: 
  Country: FR (occurrence: FR)
  Receive Date: 20121018
  Receipt Date: 20121018
  Transmission Date: 20130627
  Serious: Yes (Other)
  Sender: FDA-Public Use
  Company Number: FR-ROCHE-1146474

PATIENT
  Age: 17 Year
  Sex: Female

DRUGS (1)
  1. ROACTEMRA [Suspect]
     Indication: JUVENILE ARTHRITIS
     Route: 042

REACTIONS (2)
  - Abdominal pain [Recovering/Resolving]
  - Hepatocellular injury [Recovering/Resolving]
